FAERS Safety Report 4377907-7 (Version None)
Quarter: 2004Q2

REPORT INFORMATION
  Report Type: 
  Country: None (occurrence: None)
  Receive Date: 20040615
  Receipt Date: 20040615
  Transmission Date: 20050107
  Serious: Yes (Other)
  Sender: FDA-Public Use
  Company Number: None

PATIENT
  Age: 77 Year
  Sex: Female

DRUGS (3)
  1. FLUCINOLONE OINTMENT  0.025% FOUGERA [Suspect]
     Indication: RASH
     Dosage: APPLY BID PRN
     Dates: start: 20040501
  2. IBUPROFEN [Concomitant]
  3. MEBENDAZOLE [Concomitant]

REACTIONS (2)
  - APPLICATION SITE BURNING [None]
  - PHARMACEUTICAL PRODUCT COMPLAINT [None]
